FAERS Safety Report 20718685 (Version 2)
Quarter: 2022Q2

REPORT INFORMATION
  Report Type: Spontaneous
  Country: US (occurrence: US)
  Receive Date: 20220418
  Receipt Date: 20220506
  Transmission Date: 20220721
  Serious: Yes (Other)
  Sender: FDA-Public Use
  Company Number: US-GLENMARK PHARMACEUTICALS-2022GMK071679

PATIENT
  Age: 7 Year
  Sex: Female

DRUGS (11)
  1. LINEZOLID [Suspect]
     Active Substance: LINEZOLID
     Indication: Mycobacterium abscessus infection
     Dosage: 10 MILLIGRAM/KILOGRAM
     Route: 042
     Dates: start: 201801
  2. SULFAMETHOXAZOLE\TRIMETHOPRIM [Suspect]
     Active Substance: SULFAMETHOXAZOLE\TRIMETHOPRIM
     Indication: Product used for unknown indication
     Dosage: UNK
     Route: 065
  3. CLOFAZIMINE [Suspect]
     Active Substance: CLOFAZIMINE
     Indication: Mycobacterium abscessus infection
     Dosage: 50 MILLIGRAM, 3 TIMES A WEEK
     Route: 048
     Dates: start: 201804
  4. CEFOXITIN [Suspect]
     Active Substance: CEFOXITIN SODIUM
     Indication: Mycobacterium abscessus infection
     Dosage: 3500 MILLIGRAM
     Route: 042
  5. CEFOXITIN [Suspect]
     Active Substance: CEFOXITIN SODIUM
     Dosage: 5000 MILLIGRAM
     Route: 042
  6. TIGECYCLINE [Suspect]
     Active Substance: TIGECYCLINE
     Indication: Product used for unknown indication
     Dosage: 25 MILLIGRAM
     Route: 042
  7. CLARITHROMYCIN [Suspect]
     Active Substance: CLARITHROMYCIN
     Indication: Product used for unknown indication
     Dosage: UNK
     Route: 065
  8. DOXYCYCLINE [Suspect]
     Active Substance: DOXYCYCLINE
     Indication: Product used for unknown indication
     Dosage: UNK
     Route: 065
  9. CIPROFLOXACIN [Suspect]
     Active Substance: CIPROFLOXACIN
     Indication: Product used for unknown indication
     Dosage: UNK
     Route: 065
  10. AMIKACIN [Suspect]
     Active Substance: AMIKACIN
     Indication: Product used for unknown indication
     Dosage: 25 MILLIGRAM PER KILOGRAM, 3 TIMES A WEEK
     Route: 065
     Dates: start: 202006
  11. AZITHROMYCIN [Suspect]
     Active Substance: AZITHROMYCIN
     Indication: Cystic fibrosis
     Dosage: UNK
     Route: 065

REACTIONS (2)
  - Mycobacterium abscessus infection [Unknown]
  - Disease recurrence [Unknown]
